FAERS Safety Report 13714089 (Version 2)
Quarter: 2017Q3

REPORT INFORMATION
  Report Type: Report from Study
  Country: US (occurrence: US)
  Receive Date: 20170704
  Receipt Date: 20170727
  Transmission Date: 20171127
  Serious: Yes (Hospitalization, Disabling)
  Sender: FDA-Public Use
  Company Number: US-EMD SERONO-8165752

PATIENT
  Age: 63 Year
  Sex: Female
  Weight: 74 kg

DRUGS (10)
  1. ENTINOSTAT [Suspect]
     Active Substance: ENTINOSTAT
     Indication: MALIGNANT PERITONEAL NEOPLASM
     Route: 048
     Dates: start: 20170207, end: 20170517
  2. LEVOFLOXACIN. [Concomitant]
     Active Substance: LEVOFLOXACIN
     Indication: PRODUCT USED FOR UNKNOWN INDICATION
  3. CHOLECALCIFEROL [Concomitant]
     Active Substance: CHOLECALCIFEROL
     Indication: PRODUCT USED FOR UNKNOWN INDICATION
  4. PROCHLORPERAZINE. [Concomitant]
     Active Substance: PROCHLORPERAZINE
     Indication: PRODUCT USED FOR UNKNOWN INDICATION
  5. TOLTERODINE [Concomitant]
     Active Substance: TOLTERODINE
     Indication: PRODUCT USED FOR UNKNOWN INDICATION
  6. HYDROCODONE/ACETAMINOPHEN [Concomitant]
     Active Substance: ACETAMINOPHEN\HYDROCODONE
     Indication: PRODUCT USED FOR UNKNOWN INDICATION
  7. ONDANSETRON [Concomitant]
     Active Substance: ONDANSETRON
     Indication: PRODUCT USED FOR UNKNOWN INDICATION
  8. CALCIUM ASCORBATE [Concomitant]
     Active Substance: CALCIUM ASCORBATE
     Indication: PRODUCT USED FOR UNKNOWN INDICATION
  9. GLUCOSAMINE HCL [Concomitant]
     Active Substance: GLUCOSAMINE
     Indication: PRODUCT USED FOR UNKNOWN INDICATION
  10. AVELUMAB [Suspect]
     Active Substance: AVELUMAB
     Indication: MALIGNANT PERITONEAL NEOPLASM
     Route: 042
     Dates: start: 20170207, end: 20170517

REACTIONS (1)
  - Paraneoplastic syndrome [Recovered/Resolved with Sequelae]

NARRATIVE: CASE EVENT DATE: 20170614
